FAERS Safety Report 5214730-5 (Version None)
Quarter: 2007Q1

REPORT INFORMATION
  Report Type: 
  Country: None (occurrence: None)
  Receive Date: 20070122
  Receipt Date: 20070110
  Transmission Date: 20070707
  Serious: Yes (Hospitalization)
  Sender: FDA-Public Use
  Company Number: FR-SANOFI-SYNTHELABO-A02200700041

PATIENT
  Age: 59 Year
  Sex: Female
  Weight: 40 kg

DRUGS (4)
  1. CHLOROQUINE [Suspect]
     Indication: CUTANEOUS LUPUS ERYTHEMATOSUS
     Route: 048
     Dates: start: 19960101, end: 20011001
  2. PLAQUENIL [Suspect]
     Indication: CUTANEOUS LUPUS ERYTHEMATOSUS
     Route: 048
     Dates: start: 19920101, end: 19960601
  3. PREDNISONE [Concomitant]
     Dosage: 10 MG DAILY THEN DOSE TAPERED TO 7 MG DAILY IN JUNE 1996
     Route: 048
     Dates: start: 19920101, end: 19960601
  4. PREDNISONE [Concomitant]
     Dosage: PREDNISONE WAS PROGRESSIVELY TAPERED AND STOPPED IN 1998,
     Route: 048
     Dates: start: 19960601, end: 19980101

REACTIONS (5)
  - CARDIAC FAILURE CONGESTIVE [None]
  - CARDIOMYOPATHY [None]
  - DYSPNOEA [None]
  - POLYNEUROPATHY [None]
  - RETINOPATHY [None]
